FAERS Safety Report 5522043-7 (Version None)
Quarter: 2007Q4

REPORT INFORMATION
  Report Type: 
  Country: None (occurrence: None)
  Receive Date: 20071120
  Receipt Date: 20071114
  Transmission Date: 20080405
  Serious: Yes (Other)
  Sender: FDA-Public Use
  Company Number: B0496070A

PATIENT
  Age: 64 Year
  Sex: Female

DRUGS (3)
  1. ACETAMINOPHEN [Suspect]
     Indication: ARTHRITIS
     Route: 048
     Dates: start: 20060101
  2. VITAMINS [Concomitant]
  3. PEPCIDINE [Concomitant]

REACTIONS (1)
  - HEPATIC ENZYME INCREASED [None]
